FAERS Safety Report 10923191 (Version 1)
Quarter: 2015Q1

REPORT INFORMATION
  Report Type: Spontaneous
  Country: TR (occurrence: TR)
  Receive Date: 20150317
  Receipt Date: 20150317
  Transmission Date: 20150721
  Serious: Yes (Other)
  Sender: FDA-Public Use
  Company Number: TR-ELI_LILLY_AND_COMPANY-TR201503004888

PATIENT

DRUGS (24)
  1. HUMULIN R [Suspect]
     Active Substance: INSULIN HUMAN
     Dosage: 4 U, QD
  2. NITROUS OXIDE W/OXYGEN [Concomitant]
     Active Substance: NITROUS OXIDE\OXYGEN
     Indication: ANAESTHESIA
     Dosage: UNK
     Route: 064
  3. HUMULIN R [Suspect]
     Active Substance: INSULIN HUMAN
     Indication: BLOOD GLUCOSE INCREASED
     Dosage: 6 U, QD
     Route: 064
  4. HUMULIN R [Suspect]
     Active Substance: INSULIN HUMAN
     Dosage: 4 U, QD
  5. HUMULIN N [Suspect]
     Active Substance: INSULIN HUMAN
     Indication: BLOOD GLUCOSE INCREASED
     Dosage: 6 U, QD
     Route: 064
  6. SUCCINYLCHOLINE [Concomitant]
     Active Substance: SUCCINYLCHOLINE
     Indication: INDUCTION OF ANAESTHESIA
     Dosage: 1 MG/KG, UNK
     Route: 064
  7. HUMULIN R [Suspect]
     Active Substance: INSULIN HUMAN
     Indication: BLOOD GLUCOSE INCREASED
     Dosage: 6 U, QD
     Route: 064
  8. NITROUS OXIDE W/OXYGEN [Concomitant]
     Active Substance: NITROUS OXIDE\OXYGEN
     Indication: ANAESTHESIA
     Dosage: UNK
     Route: 064
  9. NITROFURANTOIN. [Concomitant]
     Active Substance: NITROFURANTOIN
     Dosage: 50 MG, TID
     Route: 064
  10. HUMULIN R [Suspect]
     Active Substance: INSULIN HUMAN
     Dosage: 4 U, QD
  11. NIDILAT [Concomitant]
     Indication: BLOOD PRESSURE
     Dosage: 40 MG, BID
     Route: 064
  12. OXYGEN. [Concomitant]
     Active Substance: OXYGEN
     Dosage: 100 %, UNKNOWN
     Route: 064
  13. OXYGEN. [Concomitant]
     Active Substance: OXYGEN
     Dosage: 33 %, UNKNOWN
  14. PROPOFOL. [Concomitant]
     Active Substance: PROPOFOL
     Indication: INDUCTION OF ANAESTHESIA
     Dosage: 2 MG/KG, UNK
     Route: 064
  15. HUMULIN N [Suspect]
     Active Substance: INSULIN HUMAN
     Indication: BLOOD GLUCOSE INCREASED
     Dosage: 6 U, QD
     Route: 064
  16. NITROFURANTOIN. [Concomitant]
     Active Substance: NITROFURANTOIN
     Dosage: 50 MG, TID
     Route: 064
  17. OXYGEN. [Concomitant]
     Active Substance: OXYGEN
     Dosage: 33 %, UNKNOWN
  18. PROPOFOL. [Concomitant]
     Active Substance: PROPOFOL
     Indication: INDUCTION OF ANAESTHESIA
     Dosage: 2 MG/KG, UNK
     Route: 064
  19. SUCCINYLCHOLINE [Concomitant]
     Active Substance: SUCCINYLCHOLINE
     Indication: INDUCTION OF ANAESTHESIA
     Dosage: 1 MG/KG, UNK
     Route: 064
  20. DESFLURANE. [Concomitant]
     Active Substance: DESFLURANE
     Indication: ANAESTHESIA
     Dosage: UNK UNK, UNKNOWN
     Route: 064
  21. DESFLURANE. [Concomitant]
     Active Substance: DESFLURANE
     Indication: ANAESTHESIA
     Dosage: UNK UNK, UNKNOWN
     Route: 064
  22. HUMULIN R [Suspect]
     Active Substance: INSULIN HUMAN
     Dosage: 4 U, QD
  23. NIDILAT [Concomitant]
     Indication: BLOOD PRESSURE
     Dosage: 40 MG, BID
     Route: 064
  24. OXYGEN. [Concomitant]
     Active Substance: OXYGEN
     Dosage: 100 %, UNKNOWN
     Route: 064

REACTIONS (2)
  - Foetal exposure during pregnancy [Unknown]
  - Premature baby [Unknown]
